FAERS Safety Report 25660285 (Version 1)
Quarter: 2025Q3

REPORT INFORMATION
  Report Type: Spontaneous
  Country: KE (occurrence: KE)
  Receive Date: 20250808
  Receipt Date: 20250808
  Transmission Date: 20251020
  Serious: Yes (Other)
  Sender: ROCHE
  Company Number: KE-ROCHE-10000354128

PATIENT
  Age: 41 Year
  Sex: Female

DRUGS (4)
  1. MABTHERA [Suspect]
     Active Substance: RITUXIMAB
     Indication: Anti-neutrophil cytoplasmic antibody positive vasculitis
     Route: 065
  2. PREDNISONE [Concomitant]
     Active Substance: PREDNISONE
  3. ENOXAPARIN [Concomitant]
     Active Substance: ENOXAPARIN
  4. ATORVASTATIN [Concomitant]
     Active Substance: ATORVASTATIN

REACTIONS (5)
  - Hyperthyroidism [Unknown]
  - Hypertension [Unknown]
  - Dyslipidaemia [Unknown]
  - Pneumonia [Unknown]
  - Vasculitis [Unknown]
